FAERS Safety Report 7537949-7 (Version None)
Quarter: 2011Q2

REPORT INFORMATION
  Report Type: 
  Country: None (occurrence: None)
  Receive Date: 20110609
  Receipt Date: 20110607
  Transmission Date: 20111010
  Serious: Yes (Other)
  Sender: FDA-Public Use
  Company Number: JP-PFIZER INC-2011124243

PATIENT
  Age: 64 Year
  Sex: Male

DRUGS (11)
  1. RHEUMATREX [Concomitant]
     Dosage: UNK
     Route: 048
     Dates: end: 20110417
  2. SELBEX [Concomitant]
     Dosage: UNK
  3. ALLOPURINOL [Concomitant]
     Dosage: UNK
  4. LOXONIN [Concomitant]
     Dosage: UNK
  5. MYONAL [Concomitant]
     Dosage: UNK
  6. FOLIC ACID [Concomitant]
     Dosage: UNK
  7. TOCILIZUMAB [Concomitant]
     Dosage: UNK
     Dates: end: 20110405
  8. HALCION [Concomitant]
     Dosage: UNK
     Route: 048
  9. COSPANON [Concomitant]
     Dosage: UNK
  10. LYRICA [Suspect]
     Dosage: 150 MG/DAY
     Route: 048
     Dates: start: 20110124, end: 20110509
  11. METHYCOBAL [Concomitant]
     Dosage: UNK

REACTIONS (1)
  - NEUTROPENIA [None]
